APPROVED DRUG PRODUCT: RAMIPRIL
Active Ingredient: RAMIPRIL
Strength: 10MG
Dosage Form/Route: CAPSULE;ORAL
Application: A077900 | Product #004 | TE Code: AB
Applicant: HIKMA PHARMACEUTICALS USA INC
Approved: Jun 18, 2008 | RLD: No | RS: No | Type: RX